FAERS Safety Report 13007719 (Version 2)
Quarter: 2016Q4

REPORT INFORMATION
  Report Type: Spontaneous
  Country: US (occurrence: US)
  Receive Date: 20161207
  Receipt Date: 20161216
  Transmission Date: 20170207
  Serious: No
  Sender: FDA-Public Use
  Company Number: US-ASTRAZENECA-2016SF28496

PATIENT
  Sex: Male
  Weight: 95.3 kg

DRUGS (3)
  1. DUONEB [Concomitant]
     Active Substance: ALBUTEROL SULFATE\IPRATROPIUM BROMIDE
     Indication: PROPHYLAXIS
     Dosage: AS REQUIRED
     Route: 055
  2. COMBIVENT RESCUE INHALER [Concomitant]
     Indication: PROPHYLAXIS
     Dosage: AS REQUIRED
     Route: 055
  3. SYMBICORT [Suspect]
     Active Substance: BUDESONIDE\FORMOTEROL FUMARATE DIHYDRATE
     Indication: ASTHMA
     Dosage: 160/4.5 MCG TWO PUFFS TWICE PER DAY
     Route: 055
     Dates: start: 2006

REACTIONS (4)
  - Product quality issue [Unknown]
  - Dyspnoea [Unknown]
  - Intentional product misuse [Unknown]
  - Off label use [Unknown]
